FAERS Safety Report 13485718 (Version 1)
Quarter: 2017Q2

REPORT INFORMATION
  Report Type: Not Available
  Country: None (occurrence: US)
  Receive Date: 20170426
  Receipt Date: 20170426
  Transmission Date: 20170830
  Serious: No
  Sender: FDA-Public Use
  Company Number: US-AKORN-54884

PATIENT
  Sex: Female

DRUGS (1)
  1. PROGESTERONE 200 MG CAPSULES [Suspect]
     Active Substance: PROGESTERONE

REACTIONS (5)
  - Product physical issue [None]
  - Product odour abnormal [None]
  - Product quality issue [None]
  - Dyspepsia [Unknown]
  - Product contamination physical [None]
